FAERS Safety Report 5192544-2 (Version None)
Quarter: 2006Q4

REPORT INFORMATION
  Report Type: 
  Country: None (occurrence: None)
  Receive Date: 20061220
  Receipt Date: 20061212
  Transmission Date: 20070319
  Serious: Yes (Other)
  Sender: FDA-Public Use
  Company Number: PHNU2006DE04136

PATIENT
  Age: 22 Year
  Sex: Male
  Weight: 64 kg

DRUGS (1)
  1. LAMISIL [Suspect]
     Indication: TINEA PEDIS
     Dosage: 1 DF, QD, TOPICAL
     Route: 061

REACTIONS (4)
  - BLISTER [None]
  - CELLULITIS [None]
  - ERYTHEMA [None]
  - SUPERINFECTION [None]
